FAERS Safety Report 7338164-2 (Version None)
Quarter: 2011Q1

REPORT INFORMATION
  Report Type: 
  Country: None (occurrence: None)
  Receive Date: 20110308
  Receipt Date: 20110223
  Transmission Date: 20110831
  Serious: Yes (Hospitalization)
  Sender: FDA-Public Use
  Company Number: FR-ELI_LILLY_AND_COMPANY-FR201103000405

PATIENT
  Sex: Female

DRUGS (9)
  1. LASIX [Concomitant]
  2. CYMBALTA [Suspect]
     Dosage: 60 MG, DAILY (1/D)
     Route: 048
     Dates: start: 20090918, end: 20091006
  3. ALPRAZOLAM [Concomitant]
  4. NOVONORM [Concomitant]
  5. PLAVIX [Concomitant]
  6. RAMIPRIL [Concomitant]
     Dates: end: 20090930
  7. CRESTOR [Concomitant]
     Dosage: 5 MG, DAILY (1/D)
     Route: 048
  8. LYRICA [Concomitant]
     Dosage: 75 MG, 2/D
     Route: 048
     Dates: start: 20090918, end: 20090930
  9. CARDENSIEL [Concomitant]

REACTIONS (3)
  - TOXIC SKIN ERUPTION [None]
  - FALL [None]
  - RENAL IMPAIRMENT [None]
